FAERS Safety Report 8192155-0 (Version None)
Quarter: 2012Q1

REPORT INFORMATION
  Report Type: 
  Country: None (occurrence: None)
  Receive Date: 20120307
  Receipt Date: 20120227
  Transmission Date: 20120608
  Serious: Yes (Other)
  Sender: FDA-Public Use
  Company Number: US-RB-037788-12

PATIENT
  Sex: Female

DRUGS (3)
  1. SUBUTEX [Suspect]
     Indication: DRUG DEPENDENCE
     Route: 064
     Dates: start: 20110912
  2. ZOFRAN [Concomitant]
     Indication: NAUSEA
     Dosage: 4 MG FOUR TIMES DAILY AS NEEDED
     Route: 064
  3. SUBUTEX [Suspect]
     Route: 064
     Dates: end: 20120105

REACTIONS (3)
  - PREMATURE BABY [None]
  - FOETAL EXPOSURE DURING PREGNANCY [None]
  - LOW BIRTH WEIGHT BABY [None]
